FAERS Safety Report 9106424 (Version 1)
Quarter: 2013Q1

REPORT INFORMATION
  Report Type: Spontaneous
  Country: US (occurrence: US)
  Receive Date: 20130219
  Receipt Date: 20130219
  Transmission Date: 20140127
  Serious: No
  Sender: FDA-Public Use
  Company Number: US-ASTRAZENECA-2013SE08725

PATIENT
  Age: 55 Year
  Sex: Female
  Weight: 56.7 kg

DRUGS (5)
  1. NEXIUM [Suspect]
     Indication: GASTROOESOPHAGEAL REFLUX DISEASE
     Route: 048
  2. NEXIUM [Suspect]
     Indication: HIATUS HERNIA
     Route: 048
  3. LIPITOR [Concomitant]
  4. BABY ASPIRIN [Concomitant]
  5. VITAMINS [Concomitant]

REACTIONS (5)
  - Gastrooesophageal reflux disease [Recovering/Resolving]
  - Hiatus hernia [Not Recovered/Not Resolved]
  - Abdominal discomfort [Not Recovered/Not Resolved]
  - Intentional drug misuse [Not Recovered/Not Resolved]
  - Drug dose omission [Unknown]
